FAERS Safety Report 21814618 (Version 1)
Quarter: 2023Q1

REPORT INFORMATION
  Report Type: Spontaneous
  Country: US (occurrence: US)
  Receive Date: 20230104
  Receipt Date: 20230104
  Transmission Date: 20230418
  Serious: Yes (Other)
  Sender: FDA-Public Use
  Company Number: US-drreddys-LIT/USA/22/0159191

PATIENT
  Sex: Male

DRUGS (3)
  1. TACROLIMUS [Suspect]
     Active Substance: TACROLIMUS
     Indication: Immune-mediated enterocolitis
  2. SIROLIMUS [Suspect]
     Active Substance: SIROLIMUS
     Indication: Immune-mediated enterocolitis
  3. ABATACEPT [Suspect]
     Active Substance: ABATACEPT
     Indication: Immune-mediated enterocolitis

REACTIONS (11)
  - Cholelithiasis [Unknown]
  - Bile duct stone [Unknown]
  - Epstein-Barr viraemia [Unknown]
  - Condition aggravated [Unknown]
  - Gene mutation [Unknown]
  - Copper deficiency [Unknown]
  - Vitamin A deficiency [Unknown]
  - Vitamin D deficiency [Unknown]
  - Malnutrition [Unknown]
  - Immune-mediated enterocolitis [Unknown]
  - Drug ineffective for unapproved indication [Unknown]
